FAERS Safety Report 21122376 (Version 1)
Quarter: 2022Q3

REPORT INFORMATION
  Report Type: Spontaneous
  Country: US (occurrence: US)
  Receive Date: 20220723
  Receipt Date: 20220723
  Transmission Date: 20221027
  Serious: No
  Sender: FDA-Public Use
  Company Number: US-drreddys-SPO/USA/22/0152404

PATIENT
  Age: 14 Year

DRUGS (1)
  1. ZENATANE [Suspect]
     Active Substance: ISOTRETINOIN
     Indication: Acne cystic
     Dosage: RMA ISSUE DATE: 05 MAY 2022 11:30:06 AM, 09 JUNE 2022 03:52:55 PM

REACTIONS (2)
  - Myalgia [Unknown]
  - Product use in unapproved indication [Unknown]
